FAERS Safety Report 13115997 (Version 2)
Quarter: 2018Q2

REPORT INFORMATION
  Report Type: Spontaneous
  Country: US (occurrence: US)
  Receive Date: 20170116
  Receipt Date: 20180528
  Transmission Date: 20180711
  Serious: No
  Sender: FDA-Public Use
  Company Number: US-BIOGEN-2017BI00341648

PATIENT
  Sex: Female

DRUGS (1)
  1. ZINBRYTA [Suspect]
     Active Substance: DACLIZUMAB
     Indication: MULTIPLE SCLEROSIS
     Route: 065
     Dates: start: 20160816, end: 20170131

REACTIONS (5)
  - Headache [Unknown]
  - Malaise [Unknown]
  - Confusional state [Unknown]
  - Stress [Unknown]
  - Inappropriate schedule of drug administration [Unknown]
